FAERS Safety Report 11517998 (Version 1)
Quarter: 2015Q3

REPORT INFORMATION
  Report Type: Spontaneous
  Country: AU (occurrence: AU)
  Receive Date: 20150917
  Receipt Date: 20150917
  Transmission Date: 20151125
  Serious: Yes (Other)
  Sender: FDA-Public Use
  Company Number: AU-PFIZER INC-2015300724

PATIENT
  Age: 85 Year
  Sex: Female

DRUGS (3)
  1. LYRICA [Suspect]
     Active Substance: PREGABALIN
     Dosage: UNK
  2. OLMETEC [Concomitant]
     Active Substance: OLMESARTAN MEDOXOMIL
  3. NEXIUM [Concomitant]
     Active Substance: ESOMEPRAZOLE MAGNESIUM

REACTIONS (10)
  - Peripheral swelling [Unknown]
  - Pruritus [Unknown]
  - Peripheral coldness [Unknown]
  - Muscle spasms [Unknown]
  - Abasia [Unknown]
  - Muscle tightness [Unknown]
  - Hypoaesthesia [Unknown]
  - Myalgia [Unknown]
  - Pain [Unknown]
  - Condition aggravated [Unknown]
